FAERS Safety Report 6107586-X (Version None)
Quarter: 2009Q1

REPORT INFORMATION
  Report Type: 
  Country: None (occurrence: None)
  Receive Date: 20090305
  Receipt Date: 20090223
  Transmission Date: 20090719
  Serious: Yes (Other)
  Sender: FDA-Public Use
  Company Number: CHPA2009US05356

PATIENT
  Age: 62 Year

DRUGS (1)
  1. BUFFERIN REGULAR STRENGTH (NCH) (ACETYLSALICYLIC ACID) TABLET [Suspect]
     Dosage: 3 TO 5 DF,QD,ORAL
     Route: 048

REACTIONS (4)
  - ACCIDENT [None]
  - NERVOUS SYSTEM DISORDER [None]
  - SPINAL DISORDER [None]
  - SURGERY [None]
